FAERS Safety Report 9633005 (Version 1)
Quarter: 2013Q4

REPORT INFORMATION
  Report Type: Spontaneous
  Country: NG (occurrence: NG)
  Receive Date: 20131018
  Receipt Date: 20131018
  Transmission Date: 20140711
  Serious: Yes (Hospitalization)
  Sender: FDA-Public Use
  Company Number: NG-ABBVIE-13P-121-1159383-00

PATIENT
  Age: 1 Year
  Sex: Female

DRUGS (3)
  1. EPILIM [Suspect]
     Indication: CONVULSION
     Route: 048
     Dates: start: 20130916
  2. EPILIM [Suspect]
     Route: 048
     Dates: end: 20130920
  3. COARTEM [Concomitant]
     Indication: PRODUCT USED FOR UNKNOWN INDICATION
     Dates: start: 20130918, end: 20130920

REACTIONS (3)
  - Body temperature increased [Recovered/Resolved]
  - Drug ineffective [Recovered/Resolved]
  - Infection [Recovered/Resolved]
